FAERS Safety Report 21872033 (Version 1)
Quarter: 2023Q1

REPORT INFORMATION
  Report Type: Spontaneous
  Country: US (occurrence: US)
  Receive Date: 20230117
  Receipt Date: 20230117
  Transmission Date: 20230418
  Serious: Yes (Other)
  Sender: FDA-Public Use
  Company Number: US-PFIZER INC-PV202300004661

PATIENT
  Age: 52 Year
  Sex: Male

DRUGS (1)
  1. INLYTA [Suspect]
     Active Substance: AXITINIB
     Dosage: 1 MG, 2X/DAY (BID)
     Route: 048

REACTIONS (6)
  - Hypertensive crisis [Unknown]
  - Off label use [Unknown]
  - Product use issue [Unknown]
  - Blister [Unknown]
  - Oral mucosal blistering [Unknown]
  - Abdominal discomfort [Unknown]
